FAERS Safety Report 7795428-6 (Version None)
Quarter: 2011Q3

REPORT INFORMATION
  Report Type: 
  Country: None (occurrence: None)
  Receive Date: 20110930
  Receipt Date: 20110922
  Transmission Date: 20111222
  Serious: Yes (Hospitalization, Other)
  Sender: FDA-Public Use
  Company Number: UCM201106-000024

PATIENT
  Age: 80 Year
  Sex: Female

DRUGS (5)
  1. LISINOPRIL [Suspect]
  2. POLYETHYLENE GLYCOL 3350 AND ELECTOLYTES [Suspect]
     Indication: BOWEL PREPARATION
  3. HYDROCHLOROTHIAZIDE [Suspect]
     Indication: HYPERTENSION
  4. PROPYLTHIOURACIL [Suspect]
  5. BISACODYL [Suspect]
     Indication: BOWEL PREPARATION

REACTIONS (12)
  - DIARRHOEA [None]
  - WATER INTOXICATION [None]
  - BLOOD PRESSURE DECREASED [None]
  - NAUSEA [None]
  - HYPOVOLAEMIA [None]
  - GAIT DISTURBANCE [None]
  - UNRESPONSIVE TO STIMULI [None]
  - ASTHENIA [None]
  - BRAIN OEDEMA [None]
  - DEPRESSED LEVEL OF CONSCIOUSNESS [None]
  - VOMITING [None]
  - HYPONATRAEMIA [None]
